FAERS Safety Report 8810339 (Version 3)
Quarter: 2012Q4

REPORT INFORMATION
  Report Type: 
  Country: JP (occurrence: JP)
  Receive Date: 20120926
  Receipt Date: 20121115
  Transmission Date: 20130627
  Serious: Yes (Death, Other)
  Sender: FDA-Public Use
  Company Number: JP-009507513-1209JPN006358

PATIENT
  Age: 68 Year
  Sex: Female
  Weight: 54 kg

DRUGS (10)
  1. REBETOL [Suspect]
     Indication: HEPATITIS C
     Dosage: 200 mg in morning, 400 mg in evening, daily dose unknown
     Route: 048
     Dates: start: 20120903, end: 20120908
  2. FERON [Suspect]
     Indication: HEPATITIS C
     Dosage: 6 million IU, qd
     Route: 042
     Dates: start: 20120903, end: 20120908
  3. DEPAKENE [Concomitant]
     Indication: DEPRESSION
     Dosage: 600 mg, qd
     Route: 048
     Dates: start: 20120903, end: 20120907
  4. EVISTA [Concomitant]
     Indication: OSTEOPOROSIS
     Dosage: 600 mg, qd
     Route: 048
     Dates: start: 20120903, end: 20120907
  5. ROZEREM [Concomitant]
     Indication: DEPRESSION
     Dosage: 8 mg, qd
     Route: 048
     Dates: start: 20120903, end: 20120907
  6. LUNESTA [Concomitant]
     Indication: DEPRESSION
     Dosage: 2 mg, qd
     Route: 048
     Dates: start: 20120903, end: 20120907
  7. OMEPRAL [Concomitant]
  8. GASMOTIN [Concomitant]
     Dosage: POR formulation, daily dose unknown
     Route: 048
  9. SILECE [Concomitant]
     Indication: INSOMNIA
     Dosage: 1 mg, qd
     Route: 048
     Dates: start: 201209, end: 20120907
  10. URSO [Concomitant]
     Indication: DEPRESSION
     Dosage: 200 mg, tid
     Route: 048
     Dates: start: 200610, end: 20120809

REACTIONS (4)
  - Disseminated intravascular coagulation [Fatal]
  - Septic shock [Fatal]
  - Pyrexia [Recovered/Resolved]
  - Decreased appetite [Unknown]
